FAERS Safety Report 10273247 (Version 2)
Quarter: 2014Q4

REPORT INFORMATION
  Report Type: Spontaneous
  Country: GB (occurrence: GB)
  Receive Date: 20140702
  Receipt Date: 20141119
  Transmission Date: 20150528
  Serious: Yes (Hospitalization, Disabling, Other)
  Sender: FDA-Public Use
  Company Number: GB-BAYER-2014-094185

PATIENT
  Age: 65 Year
  Sex: Male
  Weight: 92.7 kg

DRUGS (6)
  1. CIPROFLOXACIN. [Suspect]
     Active Substance: CIPROFLOXACIN
     Dosage: 500 MG, BID
     Route: 048
     Dates: start: 20140429, end: 20140501
  2. MUCODYNE [Concomitant]
     Active Substance: CARBOCYSTEINE
  3. SALBUTAMOL [Concomitant]
     Active Substance: ALBUTEROL
  4. ALLOPURINOL. [Concomitant]
     Active Substance: ALLOPURINOL
  5. BENDROFLUMETHIAZIDE [Concomitant]
     Active Substance: BENDROFLUMETHIAZIDE
  6. LISINOPRIL. [Concomitant]
     Active Substance: LISINOPRIL

REACTIONS (20)
  - Chromaturia [Recovered/Resolved]
  - Memory impairment [Recovered/Resolved with Sequelae]
  - Fatigue [Not Recovered/Not Resolved]
  - Seizure [Recovered/Resolved]
  - Disorientation [Recovered/Resolved]
  - Balance disorder [Unknown]
  - Delusion [Recovered/Resolved]
  - Sweat gland disorder [Recovered/Resolved with Sequelae]
  - Ataxia [Recovered/Resolved]
  - Hallucination [Recovered/Resolved]
  - Malaise [Unknown]
  - Amnesia [Unknown]
  - Dyspnoea [Recovered/Resolved]
  - Temperature intolerance [Recovered/Resolved]
  - Dizziness [Recovered/Resolved]
  - Diplopia [Recovered/Resolved]
  - Impaired driving ability [Unknown]
  - Anxiety [Recovered/Resolved]
  - Tremor [Recovered/Resolved]
  - Impaired work ability [Unknown]

NARRATIVE: CASE EVENT DATE: 20140429
